FAERS Safety Report 9353010 (Version 1)
Quarter: 2013Q2

REPORT INFORMATION
  Report Type: Spontaneous
  Country: US (occurrence: None)
  Receive Date: 20130614
  Receipt Date: 20130614
  Transmission Date: 20140414
  Serious: No
  Sender: FDA-Public Use
  Company Number: None

PATIENT
  Sex: Female

DRUGS (2)
  1. CITALOPRAM [Suspect]
     Indication: DEPRESSION
     Dosage: 2 AT BEDTIME
     Route: 048
     Dates: start: 20130312, end: 20130508
  2. CITALOPRAM [Suspect]
     Indication: PANIC DISORDER
     Dosage: 2 AT BEDTIME
     Route: 048
     Dates: start: 20130312, end: 20130508

REACTIONS (4)
  - Product substitution issue [None]
  - Depression [None]
  - Anxiety [None]
  - Feeling of despair [None]
